FAERS Safety Report 9558522 (Version 2)
Quarter: 2013Q4

REPORT INFORMATION
  Report Type: Report from Study
  Country: FR (occurrence: FR)
  Receive Date: 20130926
  Receipt Date: 20131023
  Transmission Date: 20140711
  Serious: Yes (Hospitalization)
  Sender: FDA-Public Use
  Company Number: FR-ROCHE-1281584

PATIENT
  Age: 50 Year
  Sex: Female

DRUGS (7)
  1. PEG-INTERFERON ALFA 2A [Suspect]
     Indication: HEPATITIS C
     Route: 065
     Dates: start: 20130417
  2. RIBAVIRIN [Suspect]
     Indication: HEPATITIS C
     Route: 065
     Dates: start: 20130417
  3. ASUNAPREVIR [Suspect]
     Indication: HEPATITIS C
     Route: 065
     Dates: start: 20130514
  4. DACLATASVIR [Suspect]
     Indication: HEPATITIS C
     Route: 065
     Dates: start: 20130514
  5. TRUVADA [Concomitant]
     Route: 065
     Dates: start: 20111022
  6. ISENTRESS [Concomitant]
     Route: 065
     Dates: start: 20111022
  7. BACTRIM [Concomitant]
     Route: 065
     Dates: start: 20130708

REACTIONS (1)
  - Leukopenia [Recovering/Resolving]
